FAERS Safety Report 24707968 (Version 1)
Quarter: 2024Q4

REPORT INFORMATION
  Report Type: Spontaneous
  Country: FR (occurrence: FR)
  Receive Date: 20241206
  Receipt Date: 20241206
  Transmission Date: 20250114
  Serious: Yes (Death, Other)
  Sender: SHIONOGI
  Company Number: FR-shionogi-202400003339

PATIENT
  Age: 62 Year
  Sex: Female

DRUGS (4)
  1. CEFIDEROCOL SULFATE TOSYLATE [Suspect]
     Active Substance: CEFIDEROCOL SULFATE TOSYLATE
     Indication: Pneumonia bacterial
     Dosage: 2G EVERY 8H OVER 3H
     Dates: start: 20240827, end: 20240918
  2. CEFIDEROCOL SULFATE TOSYLATE [Suspect]
     Active Substance: CEFIDEROCOL SULFATE TOSYLATE
     Indication: Stenotrophomonas maltophilia pneumonia
  3. LEVOFLOXACIN [Concomitant]
     Active Substance: LEVOFLOXACIN
     Indication: Pneumonia bacterial
     Dates: start: 2024
  4. LEVOFLOXACIN [Concomitant]
     Active Substance: LEVOFLOXACIN
     Indication: Stenotrophomonas maltophilia pneumonia

REACTIONS (2)
  - Multiple organ dysfunction syndrome [Fatal]
  - Septic shock [Unknown]
